FAERS Safety Report 11993216 (Version 1)
Quarter: 2016Q1

REPORT INFORMATION
  Report Type: Spontaneous
  Country: CA (occurrence: CA)
  Receive Date: 20160203
  Receipt Date: 20160203
  Transmission Date: 20160526
  Serious: Yes (Hospitalization)
  Sender: FDA-Public Use
  Company Number: CA-TEVA-630952ACC

PATIENT
  Age: 22 Year
  Sex: Female
  Weight: 104 kg

DRUGS (2)
  1. ACCUTANE [Suspect]
     Active Substance: ISOTRETINOIN
     Indication: ACNE
     Dosage: 40 MILLIGRAM DAILY;
     Route: 048
  2. LAMOTRIGINE. [Suspect]
     Active Substance: LAMOTRIGINE
     Indication: SEIZURE
     Dosage: 200 MILLIGRAM DAILY;
     Route: 065

REACTIONS (5)
  - Seizure [Recovered/Resolved]
  - Skull fracture [Recovered/Resolved]
  - Concomitant disease aggravated [Recovered/Resolved]
  - Subdural haemorrhage [Recovered/Resolved]
  - Fall [Recovered/Resolved]
